FAERS Safety Report 9245182 (Version 1)
Quarter: 2013Q2

REPORT INFORMATION
  Report Type: Report from Study
  Country: TW (occurrence: TW)
  Receive Date: 20130422
  Receipt Date: 20130422
  Transmission Date: 20140414
  Serious: Yes (Hospitalization)
  Sender: FDA-Public Use
  Company Number: TW-SHIRE-ALL1-2013-02402

PATIENT
  Age: 33 Year
  Sex: Male

DRUGS (3)
  1. IDURSULFASE [Suspect]
     Indication: MUCOPOLYSACCHARIDOSIS II
     Dosage: 0.5 MG, UNKNOWN
     Route: 041
     Dates: start: 20090517
  2. NEOSTIGMIN                         /00045902/ [Concomitant]
     Indication: EYE DISORDER
     Dosage: UNK, UNKNOWN
     Route: 047
     Dates: start: 20091002
  3. CHLORPHENIRAMINE                   /00072501/ [Concomitant]
     Indication: PREMEDICATION
     Dosage: 0.5 MG, UNKNOWN
     Route: 042

REACTIONS (3)
  - Acute abdomen [Recovered/Resolved]
  - Intestinal obstruction [Recovered/Resolved]
  - Peripheral artery aneurysm [Recovered/Resolved]
